FAERS Safety Report 8582913-2 (Version None)
Quarter: 2012Q3

REPORT INFORMATION
  Report Type: 
  Country: None (occurrence: None)
  Receive Date: 20120809
  Receipt Date: 20120730
  Transmission Date: 20120928
  Serious: No
  Sender: FDA-Public Use
  Company Number: US-ASTRAZENECA-2012SE21515

PATIENT
  Age: 50 Year
  Sex: Female

DRUGS (3)
  1. NEXIUM [Suspect]
     Route: 048
  2. ATACAND [Suspect]
     Route: 048
  3. TOPROL-XL [Suspect]
     Route: 048

REACTIONS (4)
  - HYPERTENSION [None]
  - HOT FLUSH [None]
  - MALAISE [None]
  - OEDEMA PERIPHERAL [None]
